FAERS Safety Report 8391465-1 (Version None)
Quarter: 2012Q2

REPORT INFORMATION
  Report Type: 
  Country: None (occurrence: None)
  Receive Date: 20120529
  Receipt Date: 20120521
  Transmission Date: 20120825
  Serious: Yes (Hospitalization)
  Sender: FDA-Public Use
  Company Number: US-BAYER-2012-051632

PATIENT
  Age: 45 Year
  Sex: Female
  Weight: 69.35 kg

DRUGS (20)
  1. SYMBICORT [Concomitant]
     Indication: UPPER RESPIRATORY TRACT INFECTION
     Dosage: UNK
     Dates: start: 20110106
  2. PROAIR HFA [Concomitant]
     Dosage: 90 ?G, UNK
  3. BUPROPION HYDROCHLORIDE [Concomitant]
     Dosage: 100 MG, UNK
  4. ALBUTEROL [Concomitant]
     Indication: UPPER RESPIRATORY TRACT INFECTION
     Dosage: UNK
     Dates: start: 20110106
  5. WELLBUTRIN [Concomitant]
     Dosage: 100 MG, BID
     Dates: start: 20110131
  6. ASPIRIN [Concomitant]
     Dosage: 81 MG, QD
     Dates: start: 20110203
  7. EXPECTORANT [Concomitant]
     Dosage: UNK
     Dates: start: 20110131
  8. PREDNISONE TAB [Concomitant]
     Indication: DRUG HYPERSENSITIVITY
     Dosage: 20 MG, BID
     Dates: start: 20110112
  9. KLOR-CON [Concomitant]
     Dosage: M20 TABLET
  10. COUGH SUPPRESSANTS [Concomitant]
     Dosage: UNK
     Dates: start: 20110131
  11. DROSPIRENONE AND ETHINYL ESTRADIOL [Suspect]
  12. YASMIN [Suspect]
  13. MUCINEX [Concomitant]
     Indication: UPPER RESPIRATORY TRACT INFECTION
     Dosage: UNK
     Dates: start: 20110106
  14. CIPROFLOXACIN HCL [Concomitant]
     Dosage: 500 MG, UNK
  15. KENALOG [Concomitant]
     Indication: DRUG HYPERSENSITIVITY
     Dosage: 80 MG, UNK
     Dates: start: 20110112
  16. OMEPRAZOLE [Concomitant]
     Dosage: 20 MG, QD
     Dates: start: 20110112
  17. AZITHROMYCIN [Concomitant]
     Dosage: 250 MG, UNK
  18. METHYLPREDNISOLONE [Concomitant]
     Dosage: 4 MG, UNK
  19. ZITHROMAX [Concomitant]
     Dosage: UNK
     Dates: start: 20110131
  20. IMITREX [Concomitant]
     Dosage: 100 MG, PRN
     Dates: start: 20110131

REACTIONS (2)
  - PULMONARY EMBOLISM [None]
  - DEEP VEIN THROMBOSIS [None]
